FAERS Safety Report 4386008-3 (Version None)
Quarter: 2004Q2

REPORT INFORMATION
  Report Type: 
  Country: None (occurrence: None)
  Receive Date: 20040628
  Receipt Date: 20040618
  Transmission Date: 20050107
  Serious: Yes (Death)
  Sender: FDA-Public Use
  Company Number: GB-MERCK-0406GBR00172

PATIENT
  Age: 76 Year
  Sex: Male

DRUGS (3)
  1. MIDAMOR [Suspect]
     Route: 065
  2. BENDROFLUMETHIAZIDE [Suspect]
     Route: 065
  3. CARBAMAZEPINE [Suspect]
     Indication: NEPHROGENIC DIABETES INSIPIDUS
     Route: 042

REACTIONS (11)
  - BLOOD CALCIUM INCREASED [None]
  - BLOOD CREATININE INCREASED [None]
  - BLOOD OSMOLARITY INCREASED [None]
  - BLOOD POTASSIUM INCREASED [None]
  - BLOOD SODIUM INCREASED [None]
  - BLOOD UREA INCREASED [None]
  - C-REACTIVE PROTEIN INCREASED [None]
  - GASTROINTESTINAL HAEMORRHAGE [None]
  - PCO2 INCREASED [None]
  - PO2 DECREASED [None]
  - URINE OUTPUT DECREASED [None]
